FAERS Safety Report 10244472 (Version 1)
Quarter: 2014Q2

REPORT INFORMATION
  Report Type: Spontaneous
  Country: US (occurrence: None)
  Receive Date: 20140616
  Receipt Date: 20140616
  Transmission Date: 20141212
  Serious: Yes (Death, Hospitalization)
  Sender: FDA-Public Use
  Company Number: None

PATIENT
  Age: 21 Year
  Sex: Male
  Weight: 72.58 kg

DRUGS (4)
  1. RISPERDAL [Suspect]
     Indication: DEPRESSION
     Dates: start: 20130702, end: 20130731
  2. RISPERDAL [Suspect]
     Dates: start: 20130702, end: 20130731
  3. COGENTIN [Suspect]
     Indication: DEPRESSION
  4. HALDOL [Suspect]
     Indication: DEPRESSION
     Dates: start: 20130702, end: 20130731

REACTIONS (1)
  - Completed suicide [None]
